FAERS Safety Report 4371273-9 (Version None)
Quarter: 2004Q2

REPORT INFORMATION
  Report Type: 
  Country: None (occurrence: None)
  Receive Date: 20040604
  Receipt Date: 20040429
  Transmission Date: 20050107
  Serious: Yes (Life-Threatening, Hospitalization, Disabling, Other)
  Sender: FDA-Public Use
  Company Number: US-MERCK-0405USA00165

PATIENT
  Age: 77 Year
  Sex: Male

DRUGS (1)
  1. PROSCAR [Suspect]
     Indication: BENIGN PROSTATIC HYPERPLASIA
     Route: 048
     Dates: start: 19930101, end: 20040101

REACTIONS (6)
  - BLOOD PRESSURE SYSTOLIC INCREASED [None]
  - BREAST CANCER [None]
  - GYNAECOMASTIA [None]
  - HAIR GROWTH ABNORMAL [None]
  - METASTASES TO LYMPH NODES [None]
  - URINARY RETENTION [None]
